FAERS Safety Report 6345754-2 (Version None)
Quarter: 2009Q3

REPORT INFORMATION
  Report Type: 
  Country: None (occurrence: None)
  Receive Date: 20090909
  Receipt Date: 20090904
  Transmission Date: 20100115
  Serious: Yes (Other)
  Sender: FDA-Public Use
  Company Number: GB-TEVA-208294ISR

PATIENT
  Age: 49 Year
  Sex: Female

DRUGS (1)
  1. FAMCICLOVIR [Suspect]
     Indication: GENITAL HERPES
     Route: 048
     Dates: start: 20080718, end: 20090526

REACTIONS (1)
  - HEPATOTOXICITY [None]
